FAERS Safety Report 22217659 (Version 2)
Quarter: 2023Q2

REPORT INFORMATION
  Report Type: Report from Study
  Country: DE (occurrence: DE)
  Receive Date: 20230417
  Receipt Date: 20230502
  Transmission Date: 20230721
  Serious: Yes (Death, Other)
  Sender: FDA-Public Use
  Company Number: DE-ROCHE-3277766

PATIENT
  Age: 72 Year
  Sex: Male

DRUGS (14)
  1. LENALIDOMIDE [Suspect]
     Active Substance: LENALIDOMIDE
     Indication: Diffuse large B-cell lymphoma
     Dosage: 20 MILLIGRAM, 1.33 DAY (DAYS 1, 21 OF EACH 28-DAY CYCLE)
     Route: 048
  2. LENALIDOMIDE [Suspect]
     Active Substance: LENALIDOMIDE
     Dosage: 20 MILLIGRAM, 1.33 DAY (DAYS 1, 21 OF EACH 28-DAY CYCLE)
     Route: 048
  3. RITUXIMAB [Suspect]
     Active Substance: RITUXIMAB
     Indication: Diffuse large B-cell lymphoma
     Dosage: 375 MILLIGRAM PER CUBIC METRE, (DAY 1 OF EACH 28 DAY CYCLE FOR 6 CYCLES)
     Route: 042
  4. IMBRUVICA [Suspect]
     Active Substance: IBRUTINIB
     Indication: Diffuse large B-cell lymphoma
     Dosage: 560 MILLIGRAM, ONCE A DAY
     Route: 048
  5. IMBRUVICA [Suspect]
     Active Substance: IBRUTINIB
     Dosage: 560 MILLIGRAM, ONCE A DAY
     Route: 048
  6. AZACITIDINE [Concomitant]
     Active Substance: AZACITIDINE
     Indication: Product used for unknown indication
     Dosage: 75 MILLIGRAM/SQ. METER (ON DAY 1-7)
     Route: 065
  7. CYTARABINE [Concomitant]
     Active Substance: CYTARABINE
     Indication: Product used for unknown indication
     Dosage: 100 MILLIGRAM, ONCE A DAY
     Route: 065
  8. CYTARABINE [Concomitant]
     Active Substance: CYTARABINE
     Dosage: 100 MILLIGRAM, ONCE A DAY
     Route: 065
  9. CYCLOPHOSPHAMIDE [Concomitant]
     Active Substance: CYCLOPHOSPHAMIDE
     Indication: Diffuse large B-cell lymphoma stage IV
     Dosage: 750 MG/M2(750 MILLIGRAM/SQ. METER (COMPLETED SIX COURSES OF RCHOP-14)
     Route: 065
  10. DOXORUBICIN [Concomitant]
     Active Substance: DOXORUBICIN
     Indication: Diffuse large B-cell lymphoma stage IV
     Dosage: 50 MG/M2(50 MILLIGRAM/SQ. METER (COMPLETED SIX COURSES OF R-CHOP14))
     Route: 065
  11. FILGRASTIM [Concomitant]
     Active Substance: FILGRASTIM
     Indication: Diffuse large B-cell lymphoma stage IV
     Dosage: UNK(SHORT ACTING G-CSF -FILGRASTIM ON DAY 4 UNTIL GRANULOCYTE REGENERATION)
     Route: 058
     Dates: start: 201801
  12. FILGRASTIM [Concomitant]
     Active Substance: FILGRASTIM
     Dosage: UNK(SHORT ACTING G-CSF -FILGRASTIM ON DAY 4 UNTIL GRANULOCYTE REGENERATION)
     Route: 058
     Dates: start: 20180228
  13. VINCRISTINE [Concomitant]
     Active Substance: VINCRISTINE
     Indication: Diffuse large B-cell lymphoma stage IV
     Dosage: 1 MILLIGRAM(COMPLETED SIX COURSES OF R-CHOP-14 DAY 1)
     Route: 065
  14. PREDNISONE [Concomitant]
     Active Substance: PREDNISONE
     Indication: Diffuse large B-cell lymphoma stage IV
     Dosage: 100 MILLIGRAM (COMPLETED SIX COURSES OF R-CHOP-14 DAY 1- 5)
     Route: 048

REACTIONS (8)
  - Death [Fatal]
  - Drug ineffective [Fatal]
  - Acute myeloid leukaemia [Unknown]
  - Neutropenia [Recovering/Resolving]
  - Second primary malignancy [Unknown]
  - Off label use [Unknown]
  - Product use in unapproved indication [Unknown]
  - Therapy partial responder [Unknown]
